FAERS Safety Report 18759454 (Version 1)
Quarter: 2021Q1

REPORT INFORMATION
  Report Type: Spontaneous
  Country: US (occurrence: US)
  Receive Date: 20210120
  Receipt Date: 20210120
  Transmission Date: 20210419
  Serious: No
  Sender: FDA-Public Use
  Company Number: US-UNITED THERAPEUTICS-UNT-2020-019226

PATIENT
  Age: 59 Year
  Sex: Female
  Weight: 68.03 kg

DRUGS (8)
  1. TYVASO [Suspect]
     Active Substance: TREPROSTINIL
     Dosage: 30 ?G
     Dates: start: 202012, end: 202012
  2. TYVASO [Suspect]
     Active Substance: TREPROSTINIL
     Dosage: 36 ?G
     Dates: start: 202012, end: 202012
  3. TYVASO [Suspect]
     Active Substance: TREPROSTINIL
     Dosage: UNK
  4. TYVASO [Suspect]
     Active Substance: TREPROSTINIL
     Dosage: 30 ?G
     Dates: start: 202012
  5. TADALAFIL. [Concomitant]
     Active Substance: TADALAFIL
     Indication: PRODUCT USED FOR UNKNOWN INDICATION
     Dosage: UNK
     Route: 065
  6. AMBRISENTAN [Concomitant]
     Active Substance: AMBRISENTAN
     Indication: PRODUCT USED FOR UNKNOWN INDICATION
     Dosage: UNK
     Route: 065
  7. TYVASO [Suspect]
     Active Substance: TREPROSTINIL
     Dosage: 18?54 ?G, QID
     Dates: start: 202012
  8. TYVASO [Suspect]
     Active Substance: TREPROSTINIL
     Indication: PULMONARY ARTERIAL HYPERTENSION
     Dosage: UNK
     Dates: start: 20201202

REACTIONS (19)
  - Diarrhoea [Unknown]
  - Sticky skin [Unknown]
  - Tinnitus [Not Recovered/Not Resolved]
  - Fatigue [Unknown]
  - Sneezing [Unknown]
  - Headache [Recovered/Resolved]
  - Flushing [Unknown]
  - Chills [Recovered/Resolved]
  - Decreased appetite [Unknown]
  - Pulmonary arterial pressure abnormal [Unknown]
  - Discomfort [Unknown]
  - Cough [Unknown]
  - Dysphonia [Recovered/Resolved]
  - Head discomfort [Recovered/Resolved]
  - Dysgeusia [Unknown]
  - Flatulence [Unknown]
  - Epistaxis [Unknown]
  - Hypotension [Unknown]
  - Pyrexia [Recovered/Resolved]

NARRATIVE: CASE EVENT DATE: 202012
